FAERS Safety Report 10487272 (Version 1)
Quarter: 2014Q4

REPORT INFORMATION
  Report Type: Spontaneous
  Country: US (occurrence: US)
  Receive Date: 20141001
  Receipt Date: 20141001
  Transmission Date: 20150528
  Serious: Yes (Disabling, Other)
  Sender: FDA-Public Use
  Company Number: US-PFIZER INC-2014266575

PATIENT
  Age: 54 Year
  Sex: Male
  Weight: 124.72 kg

DRUGS (7)
  1. EFFEXOR XR [Suspect]
     Active Substance: VENLAFAXINE HYDROCHLORIDE
     Indication: HORMONE LEVEL ABNORMAL
     Dosage: 150 MG, 1X/DAY
  2. EFFEXOR XR [Suspect]
     Active Substance: VENLAFAXINE HYDROCHLORIDE
     Indication: DEPRESSION
  3. CADUET [Suspect]
     Active Substance: AMLODIPINE BESYLATE\ATORVASTATIN CALCIUM
     Indication: BLOOD CHOLESTEROL ABNORMAL
  4. LOSARTAN POTASSIUM W/HYDROCHLOROTHIAZIDE [Concomitant]
     Active Substance: HYDROCHLOROTHIAZIDE\LOSARTAN POTASSIUM
     Indication: HYPERTENSION
     Dosage: 50 MG/ 12.5 MG, UNK
  5. CADUET [Suspect]
     Active Substance: AMLODIPINE BESYLATE\ATORVASTATIN CALCIUM
     Indication: HYPERTENSION
     Dosage: 1 DF, 1X/DAY
  6. CELEBREX [Suspect]
     Active Substance: CELECOXIB
     Dosage: 200 MG, 1X/DAY
     Dates: start: 2007
  7. CELEBREX [Suspect]
     Active Substance: CELECOXIB
     Indication: JOINT SWELLING
     Dosage: 200 MG, 1X/DAY
     Dates: start: 2003

REACTIONS (2)
  - Neoplasm malignant [Unknown]
  - Non-Hodgkin^s lymphoma stage III [Unknown]

NARRATIVE: CASE EVENT DATE: 200601
